FAERS Safety Report 7438443-4 (Version None)
Quarter: 2011Q2

REPORT INFORMATION
  Report Type: 
  Country: None (occurrence: None)
  Receive Date: 20110426
  Receipt Date: 20110411
  Transmission Date: 20111010
  Serious: Yes (Death, Hospitalization)
  Sender: FDA-Public Use
  Company Number: DE-GENZYME-CAMP-1001409

PATIENT
  Sex: Male
  Weight: 60 kg

DRUGS (7)
  1. DOXORUBICIN [Suspect]
     Indication: PERIPHERAL T-CELL LYMPHOMA UNSPECIFIED
     Dosage: 46 MG, ONCE
     Route: 042
     Dates: start: 20100222, end: 20100222
  2. PEGFILGRASTIM [Suspect]
     Indication: PERIPHERAL T-CELL LYMPHOMA UNSPECIFIED
     Dosage: 6 MG, ONCE
     Route: 058
     Dates: start: 20100301, end: 20100301
  3. VASOPRESSIN [Suspect]
     Indication: BLOOD PRESSURE MANAGEMENT
     Route: 065
  4. CAMPATH [Suspect]
     Indication: PERIPHERAL T-CELL LYMPHOMA UNSPECIFIED
     Dosage: 30 MG, QD
     Route: 058
     Dates: start: 20100222, end: 20100223
  5. PREDNISONE [Suspect]
     Indication: PERIPHERAL T-CELL LYMPHOMA UNSPECIFIED
     Dosage: 100 MG, QDX5
     Route: 048
     Dates: start: 20100222, end: 20100226
  6. VINCRISTINE [Suspect]
     Indication: PERIPHERAL T-CELL LYMPHOMA UNSPECIFIED
     Dosage: 2 MG, QD
     Route: 040
     Dates: start: 20100222, end: 20100222
  7. CYCLOPHOSPHAMIDE [Suspect]
     Indication: PERIPHERAL T-CELL LYMPHOMA UNSPECIFIED
     Dosage: 690 MG, ONCE
     Route: 042
     Dates: start: 20100222, end: 20100222

REACTIONS (3)
  - RESPIRATORY DISTRESS [None]
  - RESPIRATORY FAILURE [None]
  - CANDIDA PNEUMONIA [None]
